FAERS Safety Report 6011841-1 (Version None)
Quarter: 2008Q4

REPORT INFORMATION
  Report Type: 
  Country: None (occurrence: None)
  Receive Date: 20081218
  Receipt Date: 20081215
  Transmission Date: 20090506
  Serious: Yes (Death, Congenital Anomaly)
  Sender: FDA-Public Use
  Company Number: FR-ABBOTT-08P-056-0492804-00

PATIENT

DRUGS (1)
  1. HUMIRA [Suspect]
     Indication: DRUG EXPOSURE DURING PREGNANCY
     Route: 064

REACTIONS (5)
  - ABORTION INDUCED [None]
  - CONGENITAL CENTRAL NERVOUS SYSTEM ANOMALY [None]
  - DRUG EXPOSURE DURING PREGNANCY [None]
  - FOETAL CHROMOSOME ABNORMALITY [None]
  - FOETAL GROWTH RETARDATION [None]
